FAERS Safety Report 9902278 (Version 1)
Quarter: 2014Q1

REPORT INFORMATION
  Report Type: Spontaneous
  Country: US (occurrence: US)
  Receive Date: 20140217
  Receipt Date: 20140217
  Transmission Date: 20141002
  Serious: No
  Sender: FDA-Public Use
  Company Number: US-GILEAD-2011-0044298

PATIENT
  Age: 90 Year
  Sex: Female

DRUGS (1)
  1. LETAIRIS [Suspect]
     Indication: PRODUCT USED FOR UNKNOWN INDICATION
     Dosage: 5 MG, QD
     Route: 048
     Dates: start: 20110902, end: 20110911

REACTIONS (6)
  - Dizziness [Recovered/Resolved]
  - Myalgia [Recovered/Resolved]
  - Limb discomfort [Unknown]
  - Unevaluable event [Unknown]
  - Headache [Recovered/Resolved]
  - Nasal congestion [Unknown]
